FAERS Safety Report 5066051-1 (Version None)
Quarter: 2006Q3

REPORT INFORMATION
  Report Type: 
  Country: None (occurrence: None)
  Receive Date: 20060726
  Receipt Date: 20060714
  Transmission Date: 20061208
  Serious: Yes (Other)
  Sender: FDA-Public Use
  Company Number: 2006087753

PATIENT
  Sex: Female

DRUGS (2)
  1. CODRAL COUGH, COLD + FLU DAY + NIGHT (DAY) [Suspect]
     Dosage: ORAL
     Route: 048
     Dates: start: 20060712
  2. CODRAL COUGH, COLD + FLU DAY + NIGHT (NIGHT) [Suspect]
     Dosage: ORAL
     Route: 048
     Dates: start: 20060712

REACTIONS (1)
  - SYNCOPE [None]
